FAERS Safety Report 5396890-9 (Version None)
Quarter: 2007Q3

REPORT INFORMATION
  Report Type: 
  Country: None (occurrence: None)
  Receive Date: 20070725
  Receipt Date: 20070713
  Transmission Date: 20080115
  Serious: Yes (Hospitalization, Disabling, Other)
  Sender: FDA-Public Use
  Company Number: US-ELI_LILLY_AND_COMPANY-US200707003386

PATIENT
  Age: 83 Year
  Sex: Female

DRUGS (10)
  1. FORTEO [Suspect]
     Indication: OSTEOPOROSIS
     Dates: start: 20070301
  2. ISOSORBIDE DINITRATE [Concomitant]
     Dosage: 30 MG, DAILY (1/D)
  3. BENAZEPRIL HYDROCHLORIDE [Concomitant]
     Dosage: 10 MG, DAILY (1/D)
  4. ATENOLOL [Concomitant]
     Dosage: 50 MG, DAILY (1/D)
  5. NEXIUM [Concomitant]
     Dosage: 40 MG, DAILY (1/D)
  6. CARTIA XT [Concomitant]
     Dosage: 180 MG, DAILY (1/D)
  7. GLYBURIDE [Concomitant]
     Dosage: 5 MG, DAILY (1/D)
  8. METFORMIN HCL [Concomitant]
     Dosage: 850 MEQ, 2/D
  9. LIPITOR [Concomitant]
     Dosage: 10 MG, DAILY (1/D)
  10. PHENYTOIN [Concomitant]
     Dosage: 100 MG, DAILY (1/D)

REACTIONS (6)
  - ABASIA [None]
  - APHASIA [None]
  - FALL [None]
  - FEELING ABNORMAL [None]
  - MEMORY IMPAIRMENT [None]
  - SUBDURAL HAEMATOMA [None]
